FAERS Safety Report 8520654-8 (Version None)
Quarter: 2012Q3

REPORT INFORMATION
  Report Type: 
  Country: None (occurrence: None)
  Receive Date: 20120719
  Receipt Date: 20120712
  Transmission Date: 20120928
  Serious: Yes (Hospitalization)
  Sender: FDA-Public Use
  Company Number: US-NOVOPROD-355978

PATIENT
  Age: 53 Year
  Sex: Female
  Weight: 77.098 kg

DRUGS (3)
  1. NOVOLIN N [Suspect]
     Indication: TYPE 1 DIABETES MELLITUS
     Dosage: 30 UNITS IN AM
     Route: 058
     Dates: start: 20101101
  2. NOVOLIN N [Suspect]
     Dosage: 15 UNITS IN PM
     Route: 058
     Dates: start: 20101101
  3. NOVOLIN R [Suspect]
     Indication: TYPE 1 DIABETES MELLITUS
     Dosage: SLIDING SCALE
     Route: 058
     Dates: start: 20101101

REACTIONS (3)
  - BLOOD GLUCOSE DECREASED [None]
  - PNEUMOTHORAX [None]
  - RIB FRACTURE [None]
